FAERS Safety Report 5432751-4 (Version None)
Quarter: 2007Q3

REPORT INFORMATION
  Report Type: 
  Country: None (occurrence: None)
  Receive Date: 20070831
  Receipt Date: 20070822
  Transmission Date: 20080115
  Serious: Yes (Death)
  Sender: FDA-Public Use
  Company Number: IT-JNJFOC-20070804421

PATIENT

DRUGS (2)
  1. DOXIL [Suspect]
     Indication: ENDOMETRIAL CANCER
     Dosage: 6 CYCLES
     Route: 042
  2. CARBOPLATIN [Suspect]
     Indication: OVARIAN CANCER
     Dosage: 6 CYCLES
     Route: 042

REACTIONS (1)
  - DEATH [None]
